FAERS Safety Report 7240317-9 (Version None)
Quarter: 2011Q1

REPORT INFORMATION
  Report Type: 
  Country: None (occurrence: None)
  Receive Date: 20110113
  Receipt Date: 20110105
  Transmission Date: 20110831
  Serious: Yes (Disabling)
  Sender: FDA-Public Use
  Company Number: WAES 1012USA03694

PATIENT
  Age: 51 Year
  Sex: Male

DRUGS (5)
  1. CHLORPHENIRAMINE MALEATE [Concomitant]
  2. CAP VORINOSTAT [Suspect]
     Indication: MULTIPLE MYELOMA
     Dosage: 300 MG/DAILY, PO
     Route: 048
     Dates: start: 20100917, end: 20101219
  3. BORTEZOMIB [Suspect]
     Indication: MULTIPLE MYELOMA
     Dosage: 1.6 MG/DAILY, IV
     Route: 042
     Dates: start: 20100917, end: 20101219
  4. PLATELETS, LEUKOCYTE REDUCED [Concomitant]
  5. OXYCODONE HCL [Concomitant]

REACTIONS (3)
  - THROMBOCYTOPENIA [None]
  - HERPES VIRUS INFECTION [None]
  - DEAFNESS NEUROSENSORY [None]
